FAERS Safety Report 7420656-9 (Version None)
Quarter: 2011Q2

REPORT INFORMATION
  Report Type: 
  Country: None (occurrence: None)
  Receive Date: 20110418
  Receipt Date: 20110412
  Transmission Date: 20111010
  Serious: No
  Sender: FDA-Public Use
  Company Number: US-PFIZER INC-2011064640

PATIENT

DRUGS (2)
  1. GLIPIZIDE [Suspect]
     Dosage: UNK
  2. VICTOZA [Suspect]
     Dosage: 1.8 DOSE

REACTIONS (3)
  - NAUSEA [None]
  - VOMITING [None]
  - ABDOMINAL PAIN UPPER [None]
